FAERS Safety Report 13447868 (Version 1)
Quarter: 2017Q2

REPORT INFORMATION
  Report Type: Spontaneous
  Country: US (occurrence: US)
  Receive Date: 20170417
  Receipt Date: 20170417
  Transmission Date: 20170830
  Serious: Yes (Other)
  Sender: FDA-Public Use
  Company Number: None

PATIENT
  Age: 64 Year
  Sex: Male
  Weight: 84.82 kg

DRUGS (2)
  1. VANCOMYCIN 1000 MG [Suspect]
     Active Substance: VANCOMYCIN
     Indication: OSTEOMYELITIS
     Dosage: FREQUENCY - Q24H
     Route: 042
     Dates: start: 20170126, end: 20170309
  2. VANCOMYCIN 500MG [Suspect]
     Active Substance: VANCOMYCIN

REACTIONS (4)
  - Peripheral swelling [None]
  - Oedema [None]
  - Erythema [None]
  - Rash [None]

NARRATIVE: CASE EVENT DATE: 20170203
